FAERS Safety Report 21653057 (Version 1)
Quarter: 2022Q4

REPORT INFORMATION
  Report Type: Spontaneous
  Country: US (occurrence: None)
  Receive Date: 20221125
  Receipt Date: 20221125
  Transmission Date: 20230112
  Serious: No
  Sender: FDA-Public Use
  Company Number: None

PATIENT
  Age: 73 Year
  Sex: Male
  Weight: 87.09 kg

DRUGS (4)
  1. TASIGNA [Suspect]
     Active Substance: NILOTINIB
     Indication: Chronic myeloid leukaemia
     Dosage: FREQUENCY : TWICE A DAY;?
     Route: 048
  2. TASIGNA [Suspect]
     Active Substance: NILOTINIB
     Indication: Philadelphia chromosome positive
  3. ASPIRIN [Concomitant]
     Active Substance: ASPIRIN
  4. METOPROLOL SUCCINATE [Concomitant]
     Active Substance: METOPROLOL SUCCINATE

REACTIONS (2)
  - Drug tolerance [None]
  - Unevaluable event [None]
